FAERS Safety Report 14079765 (Version 1)
Quarter: 2017Q4

REPORT INFORMATION
  Report Type: Spontaneous
  Country: GB (occurrence: GB)
  Receive Date: 20171012
  Receipt Date: 20171012
  Transmission Date: 20180321
  Serious: Yes (Hospitalization)
  Sender: FDA-Public Use
  Company Number: GB-JNJFOC-20171010008

PATIENT
  Sex: Female

DRUGS (2)
  1. CANAGLIFLOZIN [Suspect]
     Active Substance: CANAGLIFLOZIN
     Indication: TYPE 2 DIABETES MELLITUS
     Dosage: 100 (UNITS UNSPECIFIED)
     Route: 065
     Dates: start: 20170615, end: 20170914
  2. METFORMIN [Concomitant]
     Active Substance: METFORMIN HYDROCHLORIDE
     Indication: TYPE 2 DIABETES MELLITUS
     Dosage: 500 (UNITS UNSPECIFIED)
     Route: 065
     Dates: start: 200704, end: 20170914

REACTIONS (1)
  - Diabetic ketoacidosis [Recovering/Resolving]
